FAERS Safety Report 7872335-1 (Version None)
Quarter: 2011Q4

REPORT INFORMATION
  Report Type: 
  Country: None (occurrence: None)
  Receive Date: 20111030
  Receipt Date: 20110317
  Transmission Date: 20120403
  Serious: Yes (Other)
  Sender: FDA-Public Use
  Company Number: US-AMGEN-USASP2011014784

PATIENT
  Age: 45 Year
  Sex: Male

DRUGS (1)
  1. ENBREL [Suspect]
     Indication: PSORIASIS
     Dosage: 50 MG, QWK

REACTIONS (2)
  - STAPHYLOCOCCAL OSTEOMYELITIS [None]
  - DEVICE RELATED INFECTION [None]
